FAERS Safety Report 18378080 (Version 1)
Quarter: 2020Q4

REPORT INFORMATION
  Report Type: Spontaneous
  Country: US (occurrence: US)
  Receive Date: 20201013
  Receipt Date: 20201013
  Transmission Date: 20210114
  Serious: No
  Sender: FDA-Public Use
  Company Number: US-PERRIGO-19US011826

PATIENT
  Sex: Female
  Weight: 63.49 kg

DRUGS (4)
  1. RANITIDINE HYDROCHLORIDE. [Suspect]
     Active Substance: RANITIDINE HYDROCHLORIDE
     Indication: GASTROOESOPHAGEAL REFLUX DISEASE
     Dosage: 75 MG, QD
     Route: 048
     Dates: start: 2019, end: 20190929
  2. ANTIHYPERTENSIVES AND DIURETICS IN COMBINATIO [Concomitant]
     Indication: HYPERTENSION
     Dosage: UNK
     Route: 065
  3. ANTIHYPERTENSIVES AND DIURETICS IN COMBINATIO [Concomitant]
     Indication: DIURETIC THERAPY
  4. SIMVASTATIN. [Concomitant]
     Active Substance: SIMVASTATIN
     Indication: BLOOD CHOLESTEROL INCREASED
     Dosage: UNK
     Route: 065
     Dates: start: 2019

REACTIONS (2)
  - Therapeutic product effect decreased [Unknown]
  - Incorrect product administration duration [Recovered/Resolved]

NARRATIVE: CASE EVENT DATE: 2019
